FAERS Safety Report 14684336 (Version 1)
Quarter: 2018Q1

REPORT INFORMATION
  Report Type: Report from Study
  Country: US (occurrence: US)
  Receive Date: 20180327
  Receipt Date: 20180327
  Transmission Date: 20180509
  Serious: Yes (Hospitalization, Other)
  Sender: FDA-Public Use
  Company Number: US-PFIZER INC-2018005561

PATIENT
  Age: 57 Year
  Sex: Female

DRUGS (1)
  1. IBRANCE [Suspect]
     Active Substance: PALBOCICLIB
     Indication: BREAST CANCER FEMALE
     Dosage: 125 MG, DAILY
     Route: 048
     Dates: start: 20171228, end: 20180317

REACTIONS (8)
  - Fatigue [Not Recovered/Not Resolved]
  - Herpes zoster [Unknown]
  - Vomiting [Recovering/Resolving]
  - Drug dose omission [Unknown]
  - Diarrhoea [Recovering/Resolving]
  - Nausea [Recovering/Resolving]
  - Pharyngitis streptococcal [Unknown]
  - Bone marrow failure [Unknown]

NARRATIVE: CASE EVENT DATE: 2017
